FAERS Safety Report 21052449 (Version 2)
Quarter: 2022Q4

REPORT INFORMATION
  Report Type: Report from Study
  Country: US (occurrence: US)
  Receive Date: 20220707
  Receipt Date: 20221004
  Transmission Date: 20230112
  Serious: Yes (Other)
  Sender: FDA-Public Use
  Company Number: US-BIOVITRUM-2022US08386

PATIENT
  Age: 40 Year
  Sex: Female

DRUGS (2)
  1. KINERET [Suspect]
     Active Substance: ANAKINRA
     Indication: Still^s disease
     Dates: start: 20190516
  2. KINERET [Suspect]
     Active Substance: ANAKINRA
     Dates: start: 20190516

REACTIONS (10)
  - Still^s disease [Unknown]
  - Condition aggravated [Unknown]
  - Nasopharyngitis [Unknown]
  - Malaise [Unknown]
  - Red blood cell count decreased [Unknown]
  - Fibrin D dimer increased [Unknown]
  - White blood cell count decreased [Unknown]
  - Urticaria [Unknown]
  - Product dose omission issue [Unknown]
  - Off label use [Unknown]

NARRATIVE: CASE EVENT DATE: 20190516
